FAERS Safety Report 6657494-0 (Version None)
Quarter: 2010Q1

REPORT INFORMATION
  Report Type: 
  Country: None (occurrence: None)
  Receive Date: 20100330
  Receipt Date: 20100326
  Transmission Date: 20100710
  Serious: Yes (Life-Threatening, Other)
  Sender: FDA-Public Use
  Company Number: PHEH2010US03336

PATIENT
  Sex: Female

DRUGS (3)
  1. VOLTAREN [Suspect]
  2. PLAVIX [Suspect]
     Indication: PERIPHERAL VASCULAR DISORDER
     Dosage: UNK
     Dates: start: 20060101
  3. PRILOSEC [Concomitant]
     Indication: GASTROOESOPHAGEAL REFLUX DISEASE

REACTIONS (11)
  - ANAEMIA [None]
  - ASTHENIA [None]
  - DIABETES MELLITUS [None]
  - DIARRHOEA [None]
  - ENDOSCOPY [None]
  - GASTROINTESTINAL HAEMORRHAGE [None]
  - INTESTINAL POLYP [None]
  - NAUSEA [None]
  - POLYPECTOMY [None]
  - RECTAL HAEMORRHAGE [None]
  - VOMITING [None]
